FAERS Safety Report 9802838 (Version 1)
Quarter: 2014Q1

REPORT INFORMATION
  Report Type: Spontaneous
  Country: US (occurrence: None)
  Receive Date: 20140106
  Receipt Date: 20140106
  Transmission Date: 20141002
  Serious: Yes (Other)
  Sender: FDA-Public Use
  Company Number: None

PATIENT
  Age: 62 Year
  Sex: Male
  Weight: 79.38 kg

DRUGS (1)
  1. PROAIR HFA [Suspect]
     Indication: DYSPNOEA
     Dosage: ONE OR TWO INHALATIONS
     Route: 055
     Dates: start: 20131201, end: 20140102

REACTIONS (4)
  - Wheezing [None]
  - Dyspnoea [None]
  - Dyspnoea [None]
  - Chronic obstructive pulmonary disease [None]
